FAERS Safety Report 16255958 (Version 1)
Quarter: 2019Q2

REPORT INFORMATION
  Report Type: Spontaneous
  Country: US (occurrence: US)
  Receive Date: 20190429
  Receipt Date: 20190429
  Transmission Date: 20190711
  Serious: Yes (Disabling)
  Sender: FDA-Public Use
  Company Number: None

PATIENT
  Age: 60 Year
  Weight: 53.1 kg

DRUGS (1)
  1. RISEDRONATE SODIUM 150MG [Suspect]
     Active Substance: RISEDRONATE SODIUM
     Indication: OSTEOPENIA
     Dosage: ?          QUANTITY:1 TABLET(S);OTHER FREQUENCY:ONCE A MONTH;?
     Route: 048
     Dates: start: 20190424, end: 20190424

REACTIONS (7)
  - Influenza like illness [None]
  - Vomiting [None]
  - Pyrexia [None]
  - Muscle spasms [None]
  - Chills [None]
  - Diarrhoea [None]
  - Abdominal pain upper [None]

NARRATIVE: CASE EVENT DATE: 20190424
